FAERS Safety Report 8435992-7 (Version None)
Quarter: 2012Q2

REPORT INFORMATION
  Report Type: 
  Country: None (occurrence: None)
  Receive Date: 20120614
  Receipt Date: 20120531
  Transmission Date: 20120825
  Serious: Yes (Life-Threatening, Other)
  Sender: FDA-Public Use
  Company Number: JP-ROCHE-1067903

PATIENT
  Sex: Male
  Weight: 63 kg

DRUGS (12)
  1. DEXAMETHASONE SODIUM PHOSPHATE [Concomitant]
     Indication: PROPHYLAXIS
     Route: 041
     Dates: start: 20111206, end: 20120508
  2. FLUOROURACIL [Concomitant]
     Dosage: UNCERTAIN DOSAGE AND 11 COURSE
     Route: 041
     Dates: end: 20120401
  3. FLUOROURACIL [Concomitant]
     Dosage: DOSAGE IS UNCERTAIN.
     Route: 041
     Dates: start: 20120101
  4. IRINOTECAN HYDROCHLORIDE [Suspect]
     Indication: LARGE INTESTINE CARCINOMA
     Dosage: DOSAGE IS UNCERTAIN.
     Route: 041
     Dates: start: 20120101
  5. OXALIPLATIN [Suspect]
     Indication: LARGE INTESTINE CARCINOMA
     Dosage: UNCERTAIN DOSAGE AND 11 COURSE
     Route: 041
     Dates: start: 20111206, end: 20120410
  6. FLUOROURACIL [Concomitant]
     Dosage: DOSAGE IS UNCERTAIN.
     Route: 040
     Dates: start: 20120101
  7. GRANISETRON [Concomitant]
     Indication: PROPHYLAXIS OF NAUSEA AND VOMITING
     Route: 041
     Dates: start: 20111206, end: 20120410
  8. AVASTIN [Suspect]
     Indication: LARGE INTESTINE CARCINOMA
     Dosage: 11 COURSE
     Route: 041
     Dates: start: 20111206, end: 20120410
  9. FLUOROURACIL [Concomitant]
     Indication: LARGE INTESTINE CARCINOMA
     Dosage: UNCERTAIN DOSAGE AND 11 COURSE
     Route: 040
     Dates: end: 20120401
  10. LEVOLEUCOVORIN CALCIUM [Suspect]
     Indication: LARGE INTESTINE CARCINOMA
     Route: 041
     Dates: start: 20111206, end: 20120410
  11. LEVOLEUCOVORIN CALCIUM [Concomitant]
     Dosage: UNCERTAIN DOSAGE AND 11 COURSE
     Route: 041
     Dates: end: 20120401
  12. LEVOLEUCOVORIN CALCIUM [Concomitant]
     Dosage: DOSAGE IS UNCERTAIN.
     Route: 041
     Dates: start: 20120101

REACTIONS (5)
  - BACK PAIN [None]
  - DISSEMINATED INTRAVASCULAR COAGULATION [None]
  - DYSPNOEA [None]
  - COLD SWEAT [None]
  - HAEMOPTYSIS [None]
